FAERS Safety Report 19858878 (Version 1)
Quarter: 2021Q3

REPORT INFORMATION
  Report Type: Other
  Country: CA (occurrence: CA)
  Receive Date: 20210921
  Receipt Date: 20210921
  Transmission Date: 20211014
  Serious: Yes (Death, Life-Threatening, Hospitalization, Other)
  Sender: FDA-Public Use
  Company Number: CA-APOTEX-2021AP042699

PATIENT
  Age: 17 Year
  Sex: Female

DRUGS (2)
  1. N?ACETYLCYSTEINE [Suspect]
     Active Substance: ACETYLCYSTEINE
     Indication: OVERDOSE
     Dosage: UNK
     Route: 042
  2. ACETAMINOPHEN. [Suspect]
     Active Substance: ACETAMINOPHEN
     Indication: OVERDOSE
     Dosage: 11.5 GRAM
     Route: 048

REACTIONS (15)
  - Confusional state [Fatal]
  - Agitation [Fatal]
  - Brain herniation [Fatal]
  - Intracranial pressure increased [Fatal]
  - Seizure [Fatal]
  - Tachypnoea [Fatal]
  - Brain oedema [Fatal]
  - Overdose [Fatal]
  - Rash maculo-papular [Fatal]
  - Brain death [Fatal]
  - Nausea [Fatal]
  - Inappropriate schedule of product administration [Fatal]
  - Flushing [Fatal]
  - Hyperhidrosis [Fatal]
  - Vomiting [Fatal]
